FAERS Safety Report 23741416 (Version 1)
Quarter: 2024Q2

REPORT INFORMATION
  Report Type: Spontaneous
  Country: IT (occurrence: IT)
  Receive Date: 20240415
  Receipt Date: 20240415
  Transmission Date: 20240716
  Serious: Yes (Hospitalization)
  Sender: FDA-Public Use
  Company Number: None

PATIENT

DRUGS (1)
  1. MEROPENEM\VABORBACTAM [Suspect]
     Active Substance: MEROPENEM\VABORBACTAM
     Indication: Pseudomonas infection
     Dosage: 1G/1G
     Route: 042

REACTIONS (1)
  - Gastroenteritis [Recovering/Resolving]

NARRATIVE: CASE EVENT DATE: 20240310
